FAERS Safety Report 6319045-X (Version None)
Quarter: 2009Q3

REPORT INFORMATION
  Report Type: 
  Country: None (occurrence: None)
  Receive Date: 20090821
  Receipt Date: 20080822
  Transmission Date: 20100115
  Serious: No
  Sender: FDA-Public Use
  Company Number: US-ABBOTT-08P-163-0466693-00

PATIENT
  Age: 36 Year
  Sex: Male
  Weight: 145.28 kg

DRUGS (6)
  1. NIASPAN [Suspect]
     Indication: BLOOD TRIGLYCERIDES INCREASED
     Dosage: AT NIGHT
     Route: 048
     Dates: start: 20080228, end: 20080314
  2. NIASPAN [Suspect]
     Route: 048
     Dates: start: 20080314, end: 20080314
  3. FENOFIBRATE [Concomitant]
     Indication: BLOOD TRIGLYCERIDES INCREASED
     Route: 048
     Dates: start: 20080315
  4. ASPIRIN [Concomitant]
     Indication: PROPHYLAXIS
     Route: 048
  5. VERAPAMIL EXTENDED-RELEASE [Concomitant]
     Indication: GASTROOESOPHAGEAL REFLUX DISEASE
     Dosage: ONE-HALF OF 240 MG TABLET TWICE DAILY
     Route: 048
  6. VALSARTAN [Concomitant]
     Indication: BLOOD PRESSURE
     Route: 048

REACTIONS (1)
  - EPISTAXIS [None]
